FAERS Safety Report 24575722 (Version 1)
Quarter: 2024Q4

REPORT INFORMATION
  Report Type: Spontaneous
  Country: US (occurrence: None)
  Receive Date: 20241101
  Receipt Date: 20241101
  Transmission Date: 20250115
  Serious: Yes (Hospitalization)
  Sender: Public
  Company Number: None

PATIENT
  Age: 73 Year
  Sex: Male

DRUGS (1)
  1. TESTOSTERONE CYPIONATE [Suspect]
     Active Substance: TESTOSTERONE CYPIONATE

REACTIONS (8)
  - Cellulitis [None]
  - Rash [None]
  - Injection site swelling [None]
  - Injection site pain [None]
  - Hyperhidrosis [None]
  - Chills [None]
  - Injection site induration [None]
  - Injection site infection [None]

NARRATIVE: CASE EVENT DATE: 20240717
